FAERS Safety Report 8024737-0 (Version None)
Quarter: 2012Q1

REPORT INFORMATION
  Report Type: 
  Country: None (occurrence: None)
  Receive Date: 20120105
  Receipt Date: 20111223
  Transmission Date: 20120608
  Serious: Yes (Hospitalization, Other)
  Sender: FDA-Public Use
  Company Number: US-ACTELION-A-NJ2011-46007

PATIENT

DRUGS (5)
  1. TRACLEER [Suspect]
     Indication: PULMONARY ARTERIAL HYPERTENSION
     Dosage: UNK
     Route: 048
     Dates: start: 20021104
  2. CALCIUM CHANNEL BLOCKERS [Concomitant]
  3. REVATIO [Concomitant]
  4. ADCIRCA [Concomitant]
  5. COUMADIN [Concomitant]

REACTIONS (12)
  - PULMONARY ARTERIAL HYPERTENSION [None]
  - AORTIC STENOSIS [None]
  - PRESYNCOPE [None]
  - PALPITATIONS [None]
  - CHEST PAIN [None]
  - STENT PLACEMENT [None]
  - CONDITION AGGRAVATED [None]
  - SYNCOPE [None]
  - MUCOUS STOOLS [None]
  - INTRA-AORTIC BALLOON PLACEMENT [None]
  - DYSPNOEA [None]
  - DRY SKIN [None]
